FAERS Safety Report 18873974 (Version 1)
Quarter: 2021Q1

REPORT INFORMATION
  Report Type: Spontaneous
  Country: JP (occurrence: JP)
  Receive Date: 20210210
  Receipt Date: 20210210
  Transmission Date: 20210420
  Serious: Yes (Hospitalization, Other)
  Sender: FDA-Public Use
  Company Number: JP-UNITED THERAPEUTICS-UNT-2017-000960

PATIENT
  Age: 53 Year
  Sex: Male
  Weight: 44.8 kg

DRUGS (26)
  1. REMODULIN [Suspect]
     Active Substance: TREPROSTINIL
     Dosage: 0.101 ?G/KG, CONTINUING
     Route: 058
     Dates: start: 2019
  2. VOLIBRIS [Concomitant]
     Active Substance: AMBRISENTAN
     Indication: PULMONARY ARTERIAL HYPERTENSION
     Dosage: UNK
     Route: 048
     Dates: start: 2011
  3. VOLIBRIS [Concomitant]
     Active Substance: AMBRISENTAN
     Indication: VENTRICULAR SEPTAL DEFECT
  4. REMODULIN [Suspect]
     Active Substance: TREPROSTINIL
     Indication: PULMONARY ARTERIAL HYPERTENSION
     Dosage: UNK UNK, CONTINUING
     Route: 058
     Dates: start: 20170112
  5. FUROSEMIDE. [Concomitant]
     Active Substance: FUROSEMIDE
     Indication: PULMONARY ARTERIAL HYPERTENSION
     Dosage: UNK
     Route: 048
  6. SELARA [Concomitant]
     Active Substance: EPLERENONE
     Indication: VENTRICULAR SEPTAL DEFECT
  7. REMODULIN [Suspect]
     Active Substance: TREPROSTINIL
     Indication: VENTRICULAR SEPTAL DEFECT
     Dosage: 0.001 ?G/KG, CONTINUING
     Route: 058
     Dates: start: 201701
  8. FUROSEMIDE. [Concomitant]
     Active Substance: FUROSEMIDE
     Indication: VENTRICULAR SEPTAL DEFECT
  9. SELARA [Concomitant]
     Active Substance: EPLERENONE
     Indication: PULMONARY ARTERIAL HYPERTENSION
     Dosage: UNK
     Route: 048
  10. ADCIRCA [Concomitant]
     Active Substance: TADALAFIL
     Indication: PULMONARY ARTERIAL HYPERTENSION
     Dosage: UNK
     Route: 048
     Dates: start: 20181219
  11. REMODULIN [Suspect]
     Active Substance: TREPROSTINIL
     Dosage: 0.101 ?G/KG, CONTINUING
     Route: 058
     Dates: end: 201902
  12. REVATIO [Concomitant]
     Active Substance: SILDENAFIL CITRATE
     Indication: VENTRICULAR SEPTAL DEFECT
  13. ADCIRCA [Concomitant]
     Active Substance: TADALAFIL
     Indication: VENTRICULAR SEPTAL DEFECT
  14. CIBENZOLINE SUCCINATE [Concomitant]
     Active Substance: CIFENLINE SUCCINATE
     Indication: PULMONARY ARTERIAL HYPERTENSION
     Dosage: 150 MG, QD (PER DAY)
     Route: 048
     Dates: start: 20190309
  15. REVATIO [Concomitant]
     Active Substance: SILDENAFIL CITRATE
     Indication: PULMONARY ARTERIAL HYPERTENSION
     Dosage: UNK
     Route: 048
     Dates: start: 20100624, end: 20181218
  16. ASPARA POTASSIUM [Concomitant]
     Active Substance: POTASSIUM ASPARTATE
     Indication: PRODUCT USED FOR UNKNOWN INDICATION
     Dosage: UNK
     Route: 048
  17. CARELOAD LA [Concomitant]
     Active Substance: BERAPROST SODIUM
     Indication: PULMONARY ARTERIAL HYPERTENSION
     Dosage: UNK
     Route: 048
     Dates: start: 20160316, end: 20170127
  18. POTASSIUM GLUCONATE [Concomitant]
     Active Substance: POTASSIUM GLUCONATE
     Indication: PROPHYLAXIS
     Dosage: UNK
     Route: 048
  19. REMODULIN [Suspect]
     Active Substance: TREPROSTINIL
     Dosage: 0.0069 ?G/KG, CONTINUING
     Route: 058
     Dates: start: 2017
  20. REMODULIN [Suspect]
     Active Substance: TREPROSTINIL
     Dosage: 0.050 ?G/KG, CONTINUING
     Route: 058
     Dates: start: 20171225
  21. REMODULIN [Suspect]
     Active Substance: TREPROSTINIL
     Dosage: UNK UNK, CONTINUING (DOSE REDUCED)
     Route: 058
  22. CARELOAD LA [Concomitant]
     Active Substance: BERAPROST SODIUM
     Indication: VENTRICULAR SEPTAL DEFECT
  23. PRANLUKAST [Concomitant]
     Active Substance: PRANLUKAST
     Indication: PROPHYLAXIS
     Dosage: UNK
     Route: 048
  24. CIRCANETTEN [Concomitant]
     Active Substance: KERATIN\SENNA LEAF
     Indication: PROPHYLAXIS
     Dosage: UNK
     Route: 048
  25. BROTIZOLAM [Concomitant]
     Active Substance: BROTIZOLAM
     Indication: INSOMNIA
     Dosage: UNK
     Route: 048
  26. CIBENZOLINE SUCCINATE [Concomitant]
     Active Substance: CIFENLINE SUCCINATE
     Indication: VENTRICULAR SEPTAL DEFECT

REACTIONS (11)
  - Arrhythmia [Unknown]
  - Atrial fibrillation [Recovered/Resolved]
  - Injection site erythema [Not Recovered/Not Resolved]
  - Injection site infection [Not Recovered/Not Resolved]
  - Nausea [Not Recovered/Not Resolved]
  - Injection site swelling [Recovering/Resolving]
  - Injection site induration [Not Recovered/Not Resolved]
  - Atrial flutter [Recovered/Resolved]
  - Cardiac failure [Unknown]
  - Injection site pain [Not Recovered/Not Resolved]
  - Injection site bruising [Not Recovered/Not Resolved]

NARRATIVE: CASE EVENT DATE: 2017
